FAERS Safety Report 5447329-6 (Version None)
Quarter: 2007Q3

REPORT INFORMATION
  Report Type: 
  Country: None (occurrence: None)
  Receive Date: 20070910
  Receipt Date: 20070905
  Transmission Date: 20080115
  Serious: Yes (Life-Threatening, Hospitalization)
  Sender: FDA-Public Use
  Company Number: JP-BRISTOL-MYERS SQUIBB COMPANY-13890553

PATIENT
  Age: 70 Year
  Sex: Female

DRUGS (6)
  1. TAXOL [Suspect]
     Indication: OVARIAN CANCER
     Route: 041
     Dates: start: 20070816, end: 20070816
  2. PARAPLATIN [Suspect]
     Indication: OVARIAN CANCER
     Route: 041
     Dates: start: 20070816, end: 20070816
  3. KYTRIL [Concomitant]
     Route: 041
     Dates: start: 20070816, end: 20070816
  4. DECADRON [Concomitant]
     Route: 041
     Dates: start: 20070816, end: 20070816
  5. RESTAMIN [Concomitant]
     Route: 048
     Dates: start: 20070816, end: 20070816
  6. TRICHLORMETHIAZIDE [Concomitant]
     Route: 048

REACTIONS (1)
  - INAPPROPRIATE ANTIDIURETIC HORMONE SECRETION [None]
